FAERS Safety Report 23836708 (Version 3)
Quarter: 2024Q2

REPORT INFORMATION
  Report Type: Spontaneous
  Country: US (occurrence: US)
  Receive Date: 20240509
  Receipt Date: 20240621
  Transmission Date: 20240715
  Serious: Yes (Hospitalization, Other)
  Sender: FDA-Public Use
  Company Number: US-AUROBINDO-AUR-APL-2024-021596

PATIENT
  Age: 80 Year
  Sex: Male

DRUGS (3)
  1. CARBIDOPA\LEVODOPA [Suspect]
     Active Substance: CARBIDOPA\LEVODOPA
     Indication: Parkinson^s disease
     Dosage: 1 DOSAGE FORM, FOUR TIMES/DAY
  2. TORSEMIDE [Suspect]
     Active Substance: TORSEMIDE
     Indication: Peripheral venous disease
     Dosage: UNK
     Route: 065
  3. TORSEMIDE [Suspect]
     Active Substance: TORSEMIDE
     Indication: Diuretic therapy

REACTIONS (5)
  - Metabolic alkalosis [Recovered/Resolved]
  - Respiratory alkalosis [Recovered/Resolved]
  - Hyperventilation [Recovered/Resolved]
  - Encephalopathy [Recovered/Resolved]
  - Hypovolaemia [Unknown]
